FAERS Safety Report 25075036 (Version 1)
Quarter: 2025Q1

REPORT INFORMATION
  Report Type: Other
  Country: IN (occurrence: IN)
  Receive Date: 20250313
  Receipt Date: 20250313
  Transmission Date: 20250408
  Serious: Yes (Hospitalization)
  Sender: LGM PHARMA SOLUTIONS, LLC
  Company Number: IN-LGM Pharma Solutions, LLC-2172768

PATIENT
  Age: 3 Year
  Sex: Male

DRUGS (1)
  1. LEVOTHYROXINE [Suspect]
     Active Substance: LEVOTHYROXINE
     Indication: Accidental exposure to product by child

REACTIONS (5)
  - Thyroxine increased [Recovered/Resolved]
  - Blood thyroid stimulating hormone decreased [Recovered/Resolved]
  - Tri-iodothyronine increased [Recovered/Resolved]
  - Hypertension [Recovered/Resolved]
  - Tachycardia [Recovered/Resolved]
